FAERS Safety Report 10306012 (Version 1)
Quarter: 2014Q3

REPORT INFORMATION
  Report Type: Spontaneous
  Country: US (occurrence: US)
  Receive Date: 20140715
  Receipt Date: 20140715
  Transmission Date: 20150326
  Serious: Yes (Other)
  Sender: FDA-Public Use
  Company Number: US-ASTRAZENECA-2014SE49031

PATIENT
  Age: 69 Year
  Sex: Male
  Weight: 106.6 kg

DRUGS (4)
  1. ZESTRIL [Suspect]
     Active Substance: LISINOPRIL
     Indication: HYPERTENSION
     Dosage: LISINOPRIL
     Route: 048
  2. ZESTRIL [Suspect]
     Active Substance: LISINOPRIL
     Indication: HYPERTENSION
     Route: 048
     Dates: start: 2007
  3. ALLOPURINOL. [Concomitant]
     Active Substance: ALLOPURINOL
     Indication: GOUT
     Dates: start: 2011
  4. UROXATROL [Concomitant]
     Indication: PROSTATOMEGALY
     Dates: start: 2012

REACTIONS (7)
  - Bladder cancer [Unknown]
  - Intentional product misuse [Unknown]
  - Pruritus generalised [Unknown]
  - Hypersensitivity [Unknown]
  - Rash macular [Unknown]
  - Dementia Alzheimer^s type [Unknown]
  - Rash [Unknown]

NARRATIVE: CASE EVENT DATE: 201303
